FAERS Safety Report 14611292 (Version 1)
Quarter: 2018Q1

REPORT INFORMATION
  Report Type: Spontaneous
  Country: FR (occurrence: FR)
  Receive Date: 20180308
  Receipt Date: 20180308
  Transmission Date: 20180509
  Serious: Yes (Disabling)
  Sender: FDA-Public Use
  Company Number: FR-MERCK KGAA-2043242

PATIENT
  Age: 42 Year
  Sex: Female

DRUGS (1)
  1. NOVOTHYROX [Suspect]
     Active Substance: LEVOTHYROXINE SODIUM
     Indication: POST PROCEDURAL HYPOTHYROIDISM

REACTIONS (13)
  - Loss of personal independence in daily activities [None]
  - Stress [None]
  - Oedema [None]
  - Fatigue [None]
  - Neck pain [None]
  - Pain [None]
  - Asthenia [None]
  - Hypersensitivity [None]
  - Blood thyroid stimulating hormone increased [None]
  - Emotional distress [None]
  - Irritability [None]
  - Feeling abnormal [None]
  - Musculoskeletal stiffness [None]

NARRATIVE: CASE EVENT DATE: 20170530
